FAERS Safety Report 10860714 (Version 2)
Quarter: 2015Q1

REPORT INFORMATION
  Report Type: Report from Study
  Country: IT (occurrence: IT)
  Receive Date: 20150224
  Receipt Date: 20150305
  Transmission Date: 20150721
  Serious: Yes (Hospitalization)
  Sender: FDA-Public Use
  Company Number: IT-ROCHE-1540310

PATIENT
  Age: 59 Year
  Sex: Female

DRUGS (3)
  1. EUTIROX [Concomitant]
     Active Substance: LEVOTHYROXINE SODIUM
     Dosage: 100 MCG/DIE
     Route: 065
  2. TAREG [Concomitant]
     Active Substance: VALSARTAN
     Dosage: 80 MG/DIE
     Route: 065
  3. BEVACIZUMAB [Suspect]
     Active Substance: BEVACIZUMAB
     Indication: ENDOMETRIAL ADENOCARCINOMA
     Dosage: 6 CYCLES + 4 CYCLES OF MAINTAINCE?ON 20/JAN/2015, SHE RECEIVED THE MOST RECENT DOSE PRIOR TO SAE.
     Route: 042
     Dates: start: 20140709

REACTIONS (1)
  - Intestinal obstruction [Unknown]

NARRATIVE: CASE EVENT DATE: 20150204
